FAERS Safety Report 10750676 (Version 2)
Quarter: 2015Q1

REPORT INFORMATION
  Report Type: Spontaneous
  Country: US (occurrence: US)
  Receive Date: 20150130
  Receipt Date: 20150204
  Transmission Date: 20150721
  Serious: No
  Sender: FDA-Public Use
  Company Number: US-BRISTOL-MYERS SQUIBB COMPANY-BMS-2015-002875

PATIENT
  Sex: Male
  Weight: 95.24 kg

DRUGS (1)
  1. PRAVACHOL [Suspect]
     Active Substance: PRAVASTATIN SODIUM
     Indication: BLOOD CHOLESTEROL INCREASED
     Dosage: 40 MG, QD
     Route: 048

REACTIONS (5)
  - Back pain [Unknown]
  - Neuropathy peripheral [Unknown]
  - Fatigue [Unknown]
  - Muscular weakness [Unknown]
  - Balance disorder [Unknown]
